FAERS Safety Report 21891570 (Version 1)
Quarter: 2023Q1

REPORT INFORMATION
  Report Type: Report from Study
  Country: PA (occurrence: PA)
  Receive Date: 20230120
  Receipt Date: 20230120
  Transmission Date: 20230417
  Serious: Yes (Other)
  Sender: FDA-Public Use
  Company Number: PA-002147023-NVSC2023PA013516

PATIENT
  Sex: Male

DRUGS (2)
  1. EXFORGE [Suspect]
     Active Substance: AMLODIPINE BESYLATE\VALSARTAN
     Indication: Hypertension
     Dosage: UNK UNK, QD (5/320 MG)
     Route: 048
     Dates: start: 2018, end: 20230118
  2. EXFORGE [Suspect]
     Active Substance: AMLODIPINE BESYLATE\VALSARTAN
     Dosage: UNK UNK, QD (5/160 MG)
     Route: 048

REACTIONS (5)
  - Parkinson^s disease [Unknown]
  - Blood pressure increased [Unknown]
  - Palpitations [Unknown]
  - Blood pressure decreased [Unknown]
  - Nasopharyngitis [Unknown]
